FAERS Safety Report 12799999 (Version 1)
Quarter: 2016Q3

REPORT INFORMATION
  Report Type: Spontaneous
  Country: US (occurrence: US)
  Receive Date: 20160930
  Receipt Date: 20160930
  Transmission Date: 20161109
  Serious: Yes (Other)
  Sender: FDA-Public Use
  Company Number: US-SA-2016SA178240

PATIENT
  Age: 39 Year
  Sex: Female

DRUGS (1)
  1. CERDELGA [Suspect]
     Active Substance: ELIGLUSTAT
     Indication: GAUCHER^S DISEASE
     Route: 065
     Dates: start: 2014

REACTIONS (3)
  - Cardiac flutter [Not Recovered/Not Resolved]
  - Treatment noncompliance [Unknown]
  - Heart rate increased [Not Recovered/Not Resolved]
